FAERS Safety Report 14214398 (Version 4)
Quarter: 2019Q2

REPORT INFORMATION
  Report Type: Spontaneous
  Country: US (occurrence: US)
  Receive Date: 20171122
  Receipt Date: 20190404
  Transmission Date: 20190711
  Serious: No
  Sender: FDA-Public Use
  Company Number: US-PFIZER INC-2017497500

PATIENT
  Age: 68 Year
  Sex: Female

DRUGS (12)
  1. AVELOX [Suspect]
     Active Substance: MOXIFLOXACIN HYDROCHLORIDE
     Dosage: UNK
  2. RELAFEN [Suspect]
     Active Substance: NABUMETONE
     Dosage: UNK
  3. AUGMENTIN [Suspect]
     Active Substance: AMOXICILLIN\CLAVULANATE POTASSIUM
     Dosage: UNK
  4. LIORESAL [Suspect]
     Active Substance: BACLOFEN
     Dosage: UNK
  5. ULTRACET [Suspect]
     Active Substance: ACETAMINOPHEN\TRAMADOL HYDROCHLORIDE
     Dosage: UNK
  6. CIPROCINONIDE [Suspect]
     Active Substance: CIPROCINONIDE
     Dosage: UNK
  7. VIOXX [Suspect]
     Active Substance: ROFECOXIB
     Dosage: UNK
  8. BACTRIM DS [Suspect]
     Active Substance: SULFAMETHOXAZOLE\TRIMETHOPRIM
     Dosage: UNK
  9. ASA [Suspect]
     Active Substance: ASPIRIN
     Dosage: UNK
  10. ELAVIL [Suspect]
     Active Substance: AMITRIPTYLINE HYDROCHLORIDE
     Dosage: UNK
  11. CIPRO [Suspect]
     Active Substance: CIPROFLOXACIN HYDROCHLORIDE
     Dosage: UNK
  12. CELEBREX [Suspect]
     Active Substance: CELECOXIB
     Dosage: UNK

REACTIONS (1)
  - Drug hypersensitivity [Unknown]
